FAERS Safety Report 24694391 (Version 2)
Quarter: 2024Q4

REPORT INFORMATION
  Report Type: Report from Study
  Country: US (occurrence: US)
  Receive Date: 20241204
  Receipt Date: 20241230
  Transmission Date: 20250114
  Serious: Yes (Other)
  Sender: INSMED
  Company Number: US-INSMED, INC.-2024-02252-US

PATIENT
  Sex: Female

DRUGS (2)
  1. ARIKAYCE [Suspect]
     Active Substance: AMIKACIN
     Indication: Mycobacterium avium complex infection
     Dosage: 590 MILLIGRAM, QD
     Route: 055
     Dates: start: 20240531, end: 20240617
  2. ARIKAYCE [Suspect]
     Active Substance: AMIKACIN
     Dosage: 590 MILLIGRAM, QD
     Route: 055
     Dates: start: 2024

REACTIONS (14)
  - Hearing aid user [Unknown]
  - Secretion discharge [Unknown]
  - Viral infection [Unknown]
  - Chills [Not Recovered/Not Resolved]
  - Adverse drug reaction [Not Recovered/Not Resolved]
  - Cough [Recovered/Resolved]
  - Cough [Recovered/Resolved]
  - Cough [Not Recovered/Not Resolved]
  - Myalgia [Not Recovered/Not Resolved]
  - Pyrexia [Not Recovered/Not Resolved]
  - Nausea [Not Recovered/Not Resolved]
  - Tinnitus [Not Recovered/Not Resolved]
  - Productive cough [Unknown]
  - Off label use [Unknown]

NARRATIVE: CASE EVENT DATE: 20240101
